FAERS Safety Report 5779530-6 (Version None)
Quarter: 2008Q2

REPORT INFORMATION
  Report Type: 
  Country: None (occurrence: None)
  Receive Date: 20080619
  Receipt Date: 20070425
  Transmission Date: 20081010
  Serious: Yes (Other)
  Sender: FDA-Public Use
  Company Number: US-ASTRAZENECA-2007UW08123

PATIENT
  Age: 57 Year
  Sex: Male

DRUGS (4)
  1. ATACAND [Suspect]
     Route: 048
  2. HYDROCHLOROTHIAZIDE [Concomitant]
  3. ADERALL [Concomitant]
  4. LEXAPRO [Concomitant]

REACTIONS (1)
  - ANGIOEDEMA [None]
